FAERS Safety Report 6168370-4 (Version None)
Quarter: 2009Q2

REPORT INFORMATION
  Report Type: 
  Country: None (occurrence: None)
  Receive Date: 20090427
  Receipt Date: 20090423
  Transmission Date: 20091009
  Serious: Yes (Hospitalization)
  Sender: FDA-Public Use
  Company Number: JP-BAYER-200811532BYL

PATIENT
  Age: 54 Year
  Sex: Male
  Weight: 50 kg

DRUGS (5)
  1. NEXAVAR [Suspect]
     Indication: RENAL CELL CARCINOMA STAGE IV
     Dosage: TOTAL DAILY DOSE: 800 MG  UNIT DOSE: 200 MG
     Route: 048
     Dates: start: 20080602
  2. CODEINE PHOSPHATE [Suspect]
     Indication: DRUG USE FOR UNKNOWN INDICATION
     Route: 048
     Dates: start: 20080602, end: 20080616
  3. MARZULENE S [Concomitant]
     Route: 048
     Dates: start: 20080602
  4. BROCIN [Concomitant]
     Route: 048
     Dates: start: 20080616, end: 20080630
  5. BISOLVON [Concomitant]
     Dosage: UNIT DOSE: 4 MG
     Route: 048
     Dates: start: 20080622, end: 20080702

REACTIONS (11)
  - ALOPECIA [None]
  - C-REACTIVE PROTEIN INCREASED [None]
  - DIARRHOEA [None]
  - DYSPNOEA [None]
  - ENTEROCOLITIS [None]
  - GASTROINTESTINAL HAEMORRHAGE [None]
  - HEPATIC FUNCTION ABNORMAL [None]
  - HYPERTENSION [None]
  - PALMAR-PLANTAR ERYTHRODYSAESTHESIA SYNDROME [None]
  - PANCREATIC DISORDER [None]
  - PLATELET COUNT INCREASED [None]
